FAERS Safety Report 4816905-3 (Version None)
Quarter: 2005Q4

REPORT INFORMATION
  Report Type: 
  Country: None (occurrence: None)
  Receive Date: 20051101
  Receipt Date: 20050725
  Transmission Date: 20060501
  Serious: Yes (Hospitalization)
  Sender: FDA-Public Use
  Company Number: US-MERCK-0507USA03997

PATIENT
  Age: 56 Year
  Sex: Female
  Weight: 64 kg

DRUGS (3)
  1. VIOXX [Suspect]
     Indication: BACK PAIN
     Route: 048
     Dates: start: 20030115, end: 20030701
  2. DESIPRAMINE HYDROCHLORIDE [Concomitant]
     Indication: INSOMNIA
     Route: 048
  3. TIZANIDINE HYDROCHLORIDE [Concomitant]
     Indication: INSOMNIA
     Route: 048

REACTIONS (22)
  - AFFECT LABILITY [None]
  - ANXIETY [None]
  - AZOTAEMIA [None]
  - BLOOD CHOLESTEROL INCREASED [None]
  - CEREBROVASCULAR ACCIDENT [None]
  - CERVICOBRACHIAL SYNDROME [None]
  - DEPRESSION [None]
  - DIVERTICULUM [None]
  - DIZZINESS [None]
  - FACET JOINT SYNDROME [None]
  - HALLUCINATION [None]
  - HEADACHE [None]
  - HIRSUTISM [None]
  - HYPERTENSION [None]
  - INTERVERTEBRAL DISC DEGENERATION [None]
  - INTERVERTEBRAL DISC PROTRUSION [None]
  - IRRITABILITY [None]
  - LUMBAR RADICULOPATHY [None]
  - MUSCLE SPASMS [None]
  - OPHTHALMOPLEGIA [None]
  - PAIN [None]
  - UPPER RESPIRATORY TRACT INFECTION [None]
